FAERS Safety Report 6685859-X (Version None)
Quarter: 2010Q2

REPORT INFORMATION
  Report Type: 
  Country: None (occurrence: None)
  Receive Date: 20100419
  Receipt Date: 20100407
  Transmission Date: 20101027
  Serious: No
  Sender: FDA-Public Use
  Company Number: US-JNJFOC-20100402910

PATIENT
  Sex: Male
  Weight: 78.47 kg

DRUGS (7)
  1. DURAGESIC-100 [Suspect]
     Indication: PAIN IN EXTREMITY
     Route: 062
     Dates: start: 20090101, end: 20090101
  2. DURAGESIC-100 [Suspect]
     Indication: BACK PAIN
     Route: 062
     Dates: start: 20090101, end: 20090101
  3. DURAGESIC-100 [Suspect]
     Route: 062
     Dates: start: 20090101
  4. DURAGESIC-100 [Suspect]
     Route: 062
     Dates: start: 20090101
  5. PENICILLIN [Concomitant]
     Indication: SPLENECTOMY
     Route: 048
  6. NORVASC [Concomitant]
     Indication: BLOOD PRESSURE ABNORMAL
     Route: 048
  7. UNKNOWN MEDICATION [Concomitant]

REACTIONS (1)
  - WRONG TECHNIQUE IN DRUG USAGE PROCESS [None]
